FAERS Safety Report 23957281 (Version 2)
Quarter: 2024Q2

REPORT INFORMATION
  Report Type: Spontaneous
  Country: NZ (occurrence: NZ)
  Receive Date: 20240610
  Receipt Date: 20240621
  Transmission Date: 20240716
  Serious: Yes (Hospitalization)
  Sender: FDA-Public Use
  Company Number: NZ-MYLANLABS-2024M1051820

PATIENT
  Sex: Male

DRUGS (1)
  1. CLOZARIL [Suspect]
     Active Substance: CLOZAPINE
     Indication: Schizophrenia
     Dosage: UNK
     Route: 048
     Dates: start: 19930209

REACTIONS (8)
  - Rectal cancer [Unknown]
  - Inflammation [Unknown]
  - White blood cell count decreased [Not Recovered/Not Resolved]
  - Neutrophil count abnormal [Unknown]
  - Haematocrit decreased [Unknown]
  - Haemoglobin decreased [Unknown]
  - Lymphocyte count decreased [Not Recovered/Not Resolved]
  - Red blood cell count decreased [Unknown]

NARRATIVE: CASE EVENT DATE: 20230101
